FAERS Safety Report 23698157 (Version 1)
Quarter: 2024Q2

REPORT INFORMATION
  Report Type: Spontaneous
  Country: BR (occurrence: BR)
  Receive Date: 20240402
  Receipt Date: 20240402
  Transmission Date: 20240716
  Serious: Yes (Other)
  Sender: FDA-Public Use
  Company Number: BR-BRA-SPO/BRA/24/0005169

PATIENT
  Age: 59 Year
  Sex: Female
  Weight: 65 kg

DRUGS (8)
  1. METOPROLOL SUCCINATE [Suspect]
     Active Substance: METOPROLOL SUCCINATE
     Indication: Hypertension
     Dosage: USES 1 OR 2 YEARS OLD AND STILL IN USE
  2. METHIMAZOLE [Suspect]
     Active Substance: METHIMAZOLE
     Indication: Graves^ disease
     Dosage: A MONTH AGO
  3. METHIMAZOLE [Suspect]
     Active Substance: METHIMAZOLE
     Dosage: FOR OVER 30 YEARS
  4. DOSS [Suspect]
     Active Substance: DOCUSATE SODIUM
     Indication: Product used for unknown indication
  5. PURAN [Concomitant]
     Active Substance: LEVOTHYROXINE SODIUM
     Indication: Hyperthyroidism
     Dates: start: 2021
  6. BENICAR [Concomitant]
     Active Substance: OLMESARTAN MEDOXOMIL
     Indication: Hypertension
     Dates: start: 2023
  7. ACETAMINOPHEN [Concomitant]
     Active Substance: ACETAMINOPHEN
     Indication: Hypertension
     Dates: start: 2004
  8. ZINPASS [Concomitant]
     Indication: Blood cholesterol increased
     Dates: start: 2022

REACTIONS (7)
  - Cardiomyopathy [Unknown]
  - Anxiety [Not Recovered/Not Resolved]
  - Nervousness [Not Recovered/Not Resolved]
  - Stress [Not Recovered/Not Resolved]
  - COVID-19 [Recovered/Resolved]
  - Carotid artery stent insertion [Unknown]
  - Memory impairment [Not Recovered/Not Resolved]

NARRATIVE: CASE EVENT DATE: 20220101
